FAERS Safety Report 6279167-9 (Version None)
Quarter: 2009Q3

REPORT INFORMATION
  Report Type: 
  Country: None (occurrence: None)
  Receive Date: 20090723
  Receipt Date: 20090710
  Transmission Date: 20100115
  Serious: Yes (Death, Hospitalization)
  Sender: FDA-Public Use
  Company Number: DE-ROCHE-642942

PATIENT
  Age: 44 Year

DRUGS (2)
  1. CAPECITABINE [Suspect]
     Route: 065
     Dates: start: 20061101, end: 20070701
  2. DOCETAXEL [Concomitant]
     Dates: start: 20080828

REACTIONS (3)
  - LYMPHANGIOSIS CARCINOMATOSA [None]
  - NEOPLASM PROGRESSION [None]
  - PULMONARY MASS [None]
